FAERS Safety Report 7916594-5 (Version None)
Quarter: 2011Q4

REPORT INFORMATION
  Report Type: 
  Country: None (occurrence: None)
  Receive Date: 20111104
  Receipt Date: 20111024
  Transmission Date: 20120403
  Serious: Yes (Life-Threatening, Hospitalization)
  Sender: FDA-Public Use
  Company Number: US-145215

PATIENT
  Sex: Female
  Weight: 110 kg

DRUGS (9)
  1. WINRHO SDF LIQUID [Suspect]
     Indication: IDIOPATHIC THROMBOCYTOPENIC PURPURA
     Dosage: (45.45 UG/KG TOTAL INTRAVENOUS (NOT OTHERWISE SPECIFIED)), (INTRAVENOUS (NOT OTHERWISE SPECIFIED)
     Route: 042
     Dates: start: 20110628, end: 20110628
  2. WINRHO SDF LIQUID [Suspect]
     Indication: IDIOPATHIC THROMBOCYTOPENIC PURPURA
     Dosage: (45.45 UG/KG TOTAL INTRAVENOUS (NOT OTHERWISE SPECIFIED)), (INTRAVENOUS (NOT OTHERWISE SPECIFIED)
     Route: 042
     Dates: start: 20110628, end: 20110628
  3. CELEBREX [Concomitant]
  4. NUVARING [Concomitant]
  5. AZITHROMYCIN [Concomitant]
  6. WINRHO SDF LIQUID [Suspect]
  7. THERAFLU [Concomitant]
  8. WELLBUTRIN [Concomitant]
  9. CELEXA [Concomitant]

REACTIONS (29)
  - BLOOD GLUCOSE INCREASED [None]
  - BLOOD BILIRUBIN INCREASED [None]
  - STATUS EPILEPTICUS [None]
  - HYPOTENSION [None]
  - BLOOD FIBRINOGEN INCREASED [None]
  - MENINGITIS [None]
  - PNEUMONIA [None]
  - ALANINE AMINOTRANSFERASE INCREASED [None]
  - INFUSION RELATED REACTION [None]
  - HAEMODYNAMIC INSTABILITY [None]
  - VASCULITIS [None]
  - CEREBRAL VENOUS THROMBOSIS [None]
  - BLOOD SODIUM DECREASED [None]
  - BLOOD LACTATE DEHYDROGENASE INCREASED [None]
  - BLOOD LACTIC ACID INCREASED [None]
  - BLOOD BICARBONATE DECREASED [None]
  - HEART RATE INCREASED [None]
  - ACUTE RESPIRATORY FAILURE [None]
  - ASPARTATE AMINOTRANSFERASE INCREASED [None]
  - ACTIVATED PARTIAL THROMBOPLASTIN TIME PROLONGED [None]
  - BLOOD ALKALINE PHOSPHATASE INCREASED [None]
  - RENAL FAILURE [None]
  - ANAPHYLACTOID REACTION [None]
  - CEREBRAL HAEMORRHAGE [None]
  - TREMOR [None]
  - LETHARGY [None]
  - INTERNATIONAL NORMALISED RATIO DECREASED [None]
  - GRAND MAL CONVULSION [None]
  - DEVICE SIGNAL DETECTION ISSUE [None]
